FAERS Safety Report 8395478-5 (Version None)
Quarter: 2012Q2

REPORT INFORMATION
  Report Type: 
  Country: None (occurrence: None)
  Receive Date: 20120530
  Receipt Date: 20110411
  Transmission Date: 20120825
  Serious: No
  Sender: FDA-Public Use
  Company Number: US-GLAXOSMITHKLINE-A0792041A

PATIENT
  Age: 68 Year
  Sex: Female

DRUGS (1)
  1. VENTOLIN [Suspect]
     Indication: ASTHMA
     Dosage: 1SPR AS REQUIRED
     Route: 055
     Dates: start: 20081201

REACTIONS (4)
  - PHARYNGEAL ULCERATION [None]
  - OROPHARYNGEAL PAIN [None]
  - DYSPHONIA [None]
  - DRUG HYPERSENSITIVITY [None]
